FAERS Safety Report 4873429-5 (Version None)
Quarter: 2005Q4

REPORT INFORMATION
  Report Type: 
  Country: None (occurrence: None)
  Receive Date: 20051201
  Receipt Date: 20050817
  Transmission Date: 20060501
  Serious: No
  Sender: FDA-Public Use
  Company Number: 2005PV001329

PATIENT
  Age: 63 Year
  Sex: Male
  Weight: 97.5234 kg

DRUGS (10)
  1. BYETTA [Suspect]
     Indication: DIABETES MELLITUS NON-INSULIN-DEPENDENT
     Dosage: 5 MCG; MCG : BID; SC
     Route: 058
     Dates: start: 20050701, end: 20050726
  2. BYETTA [Suspect]
     Indication: DIABETES MELLITUS NON-INSULIN-DEPENDENT
     Dosage: 5 MCG; MCG : BID; SC
     Route: 058
     Dates: start: 20050727
  3. STARLIX [Concomitant]
  4. METFORMIN HCL [Concomitant]
  5. NORVASC [Concomitant]
  6. QUINAPRIL [Concomitant]
  7. VYTORIN [Concomitant]
  8. TENORMIN [Concomitant]
  9. ASPIRIN [Concomitant]
  10. REGLAN [Concomitant]

REACTIONS (4)
  - DECREASED APPETITE [None]
  - DRUG EFFECT DECREASED [None]
  - INJECTION SITE BRUISING [None]
  - MEDICATION ERROR [None]
